FAERS Safety Report 14128967 (Version 1)
Quarter: 2017Q4

REPORT INFORMATION
  Report Type: Spontaneous
  Country: US (occurrence: US)
  Receive Date: 20171026
  Receipt Date: 20171026
  Transmission Date: 20180321
  Serious: No
  Sender: FDA-Public Use
  Company Number: US-GLAXOSMITHKLINE-US2017GSK162456

PATIENT
  Age: 45 Year
  Sex: Female

DRUGS (1)
  1. SUMATRIPTAN (SUMATRIPTAN SUCCINATE) SOLUTION FOR INJECTION IN PRE-FILL [Suspect]
     Active Substance: SUMATRIPTAN
     Dosage: UNK
     Route: 042
     Dates: start: 20171016

REACTIONS (5)
  - Injection site urticaria [Unknown]
  - Nausea [Unknown]
  - Injection site pain [Unknown]
  - Feeling hot [Unknown]
  - Flushing [Unknown]

NARRATIVE: CASE EVENT DATE: 20171016
